FAERS Safety Report 4854946-0 (Version None)
Quarter: 2005Q4

REPORT INFORMATION
  Report Type: 
  Country: None (occurrence: None)
  Receive Date: 20051213
  Receipt Date: 20051205
  Transmission Date: 20060501
  Serious: Yes (Hospitalization)
  Sender: FDA-Public Use
  Company Number: TCI2004A04762

PATIENT
  Age: 63 Year
  Sex: Male

DRUGS (17)
  1. ACTOS [Suspect]
     Indication: DIABETES MELLITUS NON-INSULIN-DEPENDENT
     Dosage: 15 MG (15 MG, 1 D); 15 MG (15 MG, 1 IN 1 D)
     Route: 048
     Dates: start: 20030901, end: 20040826
  2. ACTOS [Suspect]
     Indication: DIABETES MELLITUS NON-INSULIN-DEPENDENT
     Dosage: 15 MG (15 MG, 1 D); 15 MG (15 MG, 1 IN 1 D)
     Route: 048
     Dates: start: 20051109, end: 20051111
  3. BASEN (VOGLIBOSE) [Suspect]
     Indication: DIABETES MELLITUS NON-INSULIN-DEPENDENT
     Dosage: 0.6 MG (0.6 MG, 1 D); 0.8 MG (0.8 MG, 1 D)
     Route: 048
     Dates: start: 20000904, end: 20001015
  4. BASEN (VOGLIBOSE) [Suspect]
     Indication: DIABETES MELLITUS NON-INSULIN-DEPENDENT
     Dosage: 0.6 MG (0.6 MG, 1 D); 0.8 MG (0.8 MG, 1 D)
     Route: 048
     Dates: start: 20001016
  5. PRORNER (BERAPROST SODIUM) [Suspect]
     Dosage: 6 TAB (2 TAB, 3 IN 1 D)
     Route: 048
     Dates: start: 20051109, end: 20051111
  6. PALANCOM (SOFALCONE) [Concomitant]
  7. SIGMART (NICORANDIL) [Concomitant]
  8. ASPIRIN [Concomitant]
  9. FAMOTIDINE [Concomitant]
  10. DAONIL (GLIBENCLAMIDE) [Concomitant]
  11. PRAVASTATIN [Concomitant]
  12. LASIX [Concomitant]
  13. PENFILL 30R (INSULIN HUMAN) [Concomitant]
  14. ALLELOCK (GLOPATADINE HYDROCHLORIDE) [Concomitant]
  15. GASOAL (DIMETICONE) [Concomitant]
  16. LAC B (LACTOBACILLUS BIFIDUS, LYOPHILIZED) [Concomitant]
  17. ADSORBIN (ALUMINUM SILICATE) [Concomitant]

REACTIONS (8)
  - CONTUSION [None]
  - DIZZINESS [None]
  - FALL [None]
  - GENERALISED OEDEMA [None]
  - MALAISE [None]
  - PAIN IN EXTREMITY [None]
  - PNEUMONIA [None]
  - RIB FRACTURE [None]
